FAERS Safety Report 7763214-9 (Version None)
Quarter: 2011Q3

REPORT INFORMATION
  Report Type: 
  Country: None (occurrence: None)
  Receive Date: 20110920
  Receipt Date: 20110914
  Transmission Date: 20111222
  Serious: Yes (Hospitalization, Other)
  Sender: FDA-Public Use
  Company Number: PHHY2010CA45749

PATIENT
  Sex: Male

DRUGS (6)
  1. SANDOSTATIN LAR [Suspect]
     Indication: CARCINOID SYNDROME
     Dosage: 60 MG, BIW (EVERY 02 WEEKS)
     Route: 030
     Dates: start: 20061001
  2. MORPHINE [Concomitant]
     Dosage: UNK UKN, UNK
  3. GLICLAZIDE [Concomitant]
     Dosage: 30 MG DAILY
  4. FENTANYL [Concomitant]
     Dosage: 25 UG PER HOUR FOR A TOTAL OF 225 MCG/ HOUR Q2HRS
  5. FENTANYL [Concomitant]
     Dosage: UNK UKN, UNK
  6. DILAUDID [Concomitant]
     Dosage: 04 MG, QID

REACTIONS (8)
  - PAIN [None]
  - INJECTION SITE MASS [None]
  - ORTHOPNOEA [None]
  - DYSPNOEA [None]
  - COUGH [None]
  - POOR QUALITY SLEEP [None]
  - HEADACHE [None]
  - DEHYDRATION [None]
